FAERS Safety Report 5843180-3 (Version None)
Quarter: 2008Q3

REPORT INFORMATION
  Report Type: 
  Country: None (occurrence: None)
  Receive Date: 20080813
  Receipt Date: 20080804
  Transmission Date: 20090109
  Serious: Yes (Other)
  Sender: FDA-Public Use
  Company Number: PHHY2008TW16954

PATIENT
  Age: 33 Year
  Sex: Male

DRUGS (1)
  1. LESCOL XL [Suspect]
     Indication: HYPERLIPIDAEMIA
     Dosage: 80 MG, DAILY
     Route: 048
     Dates: start: 20080609, end: 20080627

REACTIONS (4)
  - DECREASED APPETITE [None]
  - MUSCULAR WEAKNESS [None]
  - RHABDOMYOLYSIS [None]
  - SYNCOPE [None]
